FAERS Safety Report 20855328 (Version 1)
Quarter: 2022Q2

REPORT INFORMATION
  Report Type: Spontaneous
  Country: US (occurrence: US)
  Receive Date: 20220520
  Receipt Date: 20220520
  Transmission Date: 20220720
  Serious: Yes (Hospitalization, Other)
  Sender: FDA-Public Use
  Company Number: US-NOVARTISPH-NVSC2021US308422

PATIENT
  Age: 67 Year
  Sex: Male
  Weight: 82.99 kg

DRUGS (14)
  1. SIGNIFOR [Suspect]
     Active Substance: PASIREOTIDE DIASPARTATE
     Indication: Pituitary-dependent Cushing^s syndrome
     Dosage: 0.9 MG, BID
     Route: 058
     Dates: start: 20201217, end: 202012
  2. SIGNIFOR [Suspect]
     Active Substance: PASIREOTIDE DIASPARTATE
     Dosage: 0.9 MG, BID
     Route: 058
     Dates: start: 20210331, end: 20210929
  3. SIGNIFOR LAR [Suspect]
     Active Substance: PASIREOTIDE PAMOATE
     Indication: Pituitary-dependent Cushing^s syndrome
     Dosage: 40 MG
     Route: 065
     Dates: start: 20201228
  4. SIGNIFOR LAR [Suspect]
     Active Substance: PASIREOTIDE PAMOATE
     Dosage: 40 MG
     Route: 065
     Dates: start: 202102
  5. METFORMIN [Suspect]
     Active Substance: METFORMIN HYDROCHLORIDE
     Indication: Blood glucose increased
     Dosage: 500 MG, PRN (AS NEEDED)
     Route: 065
  6. METOPROLOL SUCCINATE [Suspect]
     Active Substance: METOPROLOL SUCCINATE
     Indication: Atrial fibrillation
     Dosage: 200 MG, QD (FORMULATION: ER)
     Route: 065
  7. HYDROCORTISONE [Suspect]
     Active Substance: HYDROCORTISONE
     Indication: Adrenal insufficiency
     Dosage: 30 MG, QD
     Route: 065
  8. DIGOXIN [Suspect]
     Active Substance: DIGOXIN
     Indication: Atrial fibrillation
     Dosage: 1.25 UG, QD
     Route: 048
  9. FUROSEMIDE [Suspect]
     Active Substance: FUROSEMIDE
     Indication: Fluid retention
     Dosage: 10 MG, QD
     Route: 065
  10. POTASSIUM CHLORIDE [Suspect]
     Active Substance: POTASSIUM CHLORIDE
     Indication: Hypovitaminosis
     Dosage: 10 MEQ, QD
     Route: 065
  11. PREDNISONE [Suspect]
     Active Substance: PREDNISONE
     Indication: Adrenal insufficiency
     Dosage: 10 MG, PRN (AS NEEDED)
     Route: 065
  12. VITAMIN D NOS [Suspect]
     Active Substance: VITAMIN D NOS
     Indication: Hypovitaminosis
     Dosage: 1.25 UG, QD
     Route: 048
  13. TESTOSTERONE CYPIONATE [Suspect]
     Active Substance: TESTOSTERONE CYPIONATE
     Indication: Blood testosterone decreased
     Dosage: 100 MG, Q2W
     Route: 030
  14. XARELTO [Suspect]
     Active Substance: RIVAROXABAN
     Indication: Atrial fibrillation
     Dosage: 20 MG, QD
     Route: 065

REACTIONS (4)
  - Dyspnoea [Unknown]
  - Neoplasm malignant [Unknown]
  - Brain neoplasm [Unknown]
  - Lung neoplasm malignant [Unknown]

NARRATIVE: CASE EVENT DATE: 20210929
